FAERS Safety Report 6145103-9 (Version None)
Quarter: 2009Q2

REPORT INFORMATION
  Report Type: 
  Country: None (occurrence: None)
  Receive Date: 20090406
  Receipt Date: 20090330
  Transmission Date: 20091009
  Serious: Yes (Life-Threatening)
  Sender: FDA-Public Use
  Company Number: TW-B.I. PHARMACEUTICALS,INC./RIDGEFIELD-2009-DE-02706GD

PATIENT
  Age: 74 Year
  Sex: Female

DRUGS (7)
  1. AGGRENOX [Suspect]
     Indication: TRANSIENT ISCHAEMIC ATTACK
  2. PARACETAMOL [Suspect]
     Indication: HEADACHE
  3. PENTOXIFYLLINE [Concomitant]
  4. AMLODIPINE BESYLATE [Concomitant]
     Indication: HYPERTENSION
  5. REPAGLINIDE [Concomitant]
     Indication: DIABETES MELLITUS
  6. SENNOSIDE [Concomitant]
  7. MAGNESIUM OXIDE [Concomitant]

REACTIONS (1)
  - STEVENS-JOHNSON SYNDROME [None]
